FAERS Safety Report 6674680-4 (Version None)
Quarter: 2010Q1

REPORT INFORMATION
  Report Type: 
  Country: None (occurrence: None)
  Receive Date: 20100309
  Receipt Date: 20090516
  Transmission Date: 20100710
  Serious: Yes (Other)
  Sender: FDA-Public Use
  Company Number: 2009190301

PATIENT
  Sex: Female

DRUGS (1)
  1. GEODON (ZIPRASIDONE HCL) UNKNOWN [Suspect]
     Indication: BIPOLAR DISORDER
     Dosage: UNIT DOSE

REACTIONS (2)
  - ABNORMAL BEHAVIOUR [None]
  - DYSKINESIA [None]
